FAERS Safety Report 14710894 (Version 4)
Quarter: 2018Q2

REPORT INFORMATION
  Report Type: Spontaneous
  Country: US (occurrence: US)
  Receive Date: 20180403
  Receipt Date: 20180604
  Transmission Date: 20180711
  Serious: Yes (Death, Hospitalization)
  Sender: FDA-Public Use
  Company Number: US-CELGENEUS-USA-20180309889

PATIENT
  Age: 73 Year
  Sex: Female

DRUGS (1)
  1. REVLIMID [Suspect]
     Active Substance: LENALIDOMIDE
     Indication: WALDENSTROM^S MACROGLOBULINAEMIA
     Dosage: 10 MILLIGRAM
     Route: 048
     Dates: start: 201803

REACTIONS (2)
  - Waldenstrom^s macroglobulinaemia [Fatal]
  - Gait inability [Unknown]

NARRATIVE: CASE EVENT DATE: 2018
